FAERS Safety Report 7245555-7 (Version None)
Quarter: 2011Q1

REPORT INFORMATION
  Report Type: 
  Country: None (occurrence: None)
  Receive Date: 20110126
  Receipt Date: 20110118
  Transmission Date: 20110831
  Serious: Yes (Hospitalization)
  Sender: FDA-Public Use
  Company Number: DE-ELI_LILLY_AND_COMPANY-DE201101005033

PATIENT
  Sex: Male
  Weight: 111 kg

DRUGS (13)
  1. METAMIZOL [Concomitant]
     Indication: PAIN
     Dates: start: 20100915
  2. CISPLATIN [Suspect]
     Indication: NON-SMALL CELL LUNG CANCER
     Dosage: 170 MG, UNK
     Dates: start: 20100930
  3. TORASEMID [Concomitant]
     Indication: HYPERTENSION
     Dates: start: 20100921
  4. POTASSIUM [Concomitant]
     Indication: HYPOKALAEMIA
     Dates: start: 20100917
  5. SPIRONOLACTONE [Concomitant]
     Indication: OEDEMA
     Dates: start: 20101112, end: 20101201
  6. TARGIN [Concomitant]
     Indication: PAIN
     Dates: start: 20100917
  7. INSULIN LISPRO [Concomitant]
     Indication: DIABETES MELLITUS
     Dates: start: 20100915
  8. HYDROCHLOROTHIAZDE TAB [Concomitant]
     Indication: HYPERTENSION
     Dates: start: 20101022
  9. ENALPRIN [Concomitant]
     Indication: HYPERTENSION
     Dates: start: 20100916
  10. SPIRONOLACTONE [Concomitant]
     Dates: start: 20101202
  11. ENOXAPARIN SODIUM [Concomitant]
     Indication: THROMBOSIS PROPHYLAXIS
     Dates: start: 20101202, end: 20101203
  12. ALLOPURINOL [Concomitant]
     Indication: HYPERURICAEMIA
     Dates: start: 20101023
  13. GEMCITABINE HYDROCHLORIDE [Suspect]
     Indication: NON-SMALL CELL LUNG CANCER
     Dosage: 2850 MG, UNK
     Dates: start: 20100930

REACTIONS (1)
  - TRANSIENT ISCHAEMIC ATTACK [None]
